FAERS Safety Report 13912780 (Version 2)
Quarter: 2017Q3

REPORT INFORMATION
  Report Type: Spontaneous
  Country: US (occurrence: US)
  Receive Date: 20170828
  Receipt Date: 20170911
  Transmission Date: 20171127
  Serious: Yes (Other)
  Sender: FDA-Public Use
  Company Number: US-BRISTOL-MYERS SQUIBB COMPANY-BMS-2017-076424

PATIENT
  Age: 68 Year
  Sex: Male
  Weight: 124.7 kg

DRUGS (2)
  1. PREVNAR 13 [Suspect]
     Active Substance: PNEUMOCOCCAL 13-VALENT CONJUGATE VACCINE
     Indication: IMMUNISATION
     Dosage: 0.5 ML READY TO USE
     Route: 065
     Dates: start: 201708, end: 201708
  2. ELIQUIS [Suspect]
     Active Substance: APIXABAN
     Indication: PRODUCT USED FOR UNKNOWN INDICATION
     Dosage: UNK, DAILY (UNSURE OD DOSE)
     Route: 065
     Dates: start: 201708, end: 201708

REACTIONS (2)
  - Rash generalised [Recovering/Resolving]
  - Urticaria [Recovering/Resolving]

NARRATIVE: CASE EVENT DATE: 201708
